FAERS Safety Report 13424081 (Version 1)
Quarter: 2017Q2

REPORT INFORMATION
  Report Type: Spontaneous
  Country: AT (occurrence: AT)
  Receive Date: 20170410
  Receipt Date: 20170410
  Transmission Date: 20170830
  Serious: Yes (Hospitalization)
  Sender: FDA-Public Use
  Company Number: US-ASTRAZENECA-2017SE37030

PATIENT
  Age: 16 Week
  Sex: Male
  Weight: 4.7 kg

DRUGS (3)
  1. SYNAGIS [Suspect]
     Active Substance: PALIVIZUMAB
     Indication: ANTIVIRAL PROPHYLAXIS
     Route: 030
  2. FE-III-OH (FERRUM HAUSMANN) GTT (NON-ABBVIE) [Concomitant]
     Indication: PROPHYLAXIS
     Route: 048
     Dates: start: 20170201
  3. VITAMIN D3 [Concomitant]
     Active Substance: CHOLECALCIFEROL
     Indication: PROPHYLAXIS
     Dosage: NON-ABBVIE
     Route: 048
     Dates: start: 20161201

REACTIONS (4)
  - Respiratory syncytial virus infection [Unknown]
  - Nasal obstruction [Unknown]
  - Respiratory distress [Unknown]
  - Respiratory syncytial virus test positive [Recovered/Resolved]

NARRATIVE: CASE EVENT DATE: 20170320
